FAERS Safety Report 15626465 (Version 1)
Quarter: 2018Q4

REPORT INFORMATION
  Report Type: Spontaneous
  Country: NL (occurrence: NL)
  Receive Date: 20181116
  Receipt Date: 20181116
  Transmission Date: 20190205
  Serious: Yes (Other)
  Sender: FDA-Public Use
  Company Number: NL-TEVA-2018-NL-975881

PATIENT
  Age: 54 Year
  Sex: Female
  Weight: 90 kg

DRUGS (1)
  1. DICLOFENAC TABLET WITH REGULATED RELEASE, 75 MG (MILLIGRAMS) [Suspect]
     Active Substance: DICLOFENAC
     Indication: OSTEITIS
     Dosage: 2 X PER DAG
     Route: 065
     Dates: start: 20181009, end: 20181012

REACTIONS (3)
  - Haematochezia [Unknown]
  - Diarrhoea [Unknown]
  - Abdominal discomfort [Unknown]

NARRATIVE: CASE EVENT DATE: 20181009
